FAERS Safety Report 7737763-3 (Version None)
Quarter: 2011Q3

REPORT INFORMATION
  Report Type: 
  Country: None (occurrence: None)
  Receive Date: 20110908
  Receipt Date: 20110905
  Transmission Date: 20111222
  Serious: Yes (Hospitalization, Other)
  Sender: FDA-Public Use
  Company Number: MY-PFIZER INC-2011196849

PATIENT
  Sex: Female

DRUGS (2)
  1. LIPITOR [Suspect]
     Dosage: 40 MG, 1X/DAY
  2. ACETYLSALICYLIC ACID [Concomitant]

REACTIONS (4)
  - JAUNDICE [None]
  - CHOLECYSTITIS [None]
  - HEPATITIS [None]
  - PYREXIA [None]
